FAERS Safety Report 7117178-1 (Version None)
Quarter: 2010Q4

REPORT INFORMATION
  Report Type: 
  Country: None (occurrence: None)
  Receive Date: 20101122
  Receipt Date: 20101109
  Transmission Date: 20110411
  Serious: Yes (Hospitalization)
  Sender: FDA-Public Use
  Company Number: US-MYLANLABS-2010S1020958

PATIENT
  Age: 74 Year
  Sex: Female

DRUGS (9)
  1. CITALOPRAM HYDROBROMIDE [Interacting]
     Route: 065
  2. RISPERIDONE [Suspect]
     Indication: AGGRESSION
     Route: 048
  3. RISPERIDONE [Interacting]
     Route: 048
  4. MEMANTINE [Concomitant]
     Route: 065
  5. DONEPEZIL HCL [Concomitant]
     Route: 065
  6. LEVOTHYROXINE SODIUM [Concomitant]
     Route: 065
  7. ATENOLOL [Concomitant]
     Route: 065
  8. COTRIMOXAZOLE [Concomitant]
     Dosage: DOSAGE FORM: DOUBLE-STRENGTH TABLET.
     Route: 065
  9. ASPIRIN [Concomitant]
     Route: 065

REACTIONS (2)
  - DRUG INTERACTION [None]
  - SEROTONIN SYNDROME [None]
